FAERS Safety Report 6194907-5 (Version None)
Quarter: 2009Q2

REPORT INFORMATION
  Report Type: 
  Country: None (occurrence: None)
  Receive Date: 20090515
  Receipt Date: 20090515
  Transmission Date: 20091009
  Serious: Yes (Hospitalization)
  Sender: FDA-Public Use
  Company Number: None

PATIENT
  Age: 73 Year
  Sex: Male
  Weight: 90.7194 kg

DRUGS (1)
  1. ZEGERID [Suspect]
     Indication: GASTROOESOPHAGEAL REFLUX DISEASE
     Dosage: ONE PILL DAILY PO
     Route: 048
     Dates: start: 20090513, end: 20090514

REACTIONS (2)
  - DIARRHOEA [None]
  - VOMITING [None]
